FAERS Safety Report 23076493 (Version 5)
Quarter: 2024Q1

REPORT INFORMATION
  Report Type: Spontaneous
  Country: US (occurrence: US)
  Receive Date: 20231017
  Receipt Date: 20240321
  Transmission Date: 20240410
  Serious: Yes (Hospitalization)
  Sender: FDA-Public Use
  Company Number: US-PFIZER INC-PV202300145583

PATIENT
  Age: 77 Year
  Sex: Female
  Weight: 58.05 kg

DRUGS (8)
  1. VIZIMPRO [Suspect]
     Active Substance: DACOMITINIB
     Indication: Lung cancer metastatic
     Dosage: 45 MG
  2. VIZIMPRO [Suspect]
     Active Substance: DACOMITINIB
     Dosage: 30 MG, DAILY
     Route: 048
     Dates: start: 20230901
  3. VIZIMPRO [Suspect]
     Active Substance: DACOMITINIB
     Dosage: 30 MG, DAILY
     Route: 048
  4. VIZIMPRO [Suspect]
     Active Substance: DACOMITINIB
     Dosage: 30 MG, DAILY
     Route: 048
  5. VIZIMPRO [Suspect]
     Active Substance: DACOMITINIB
     Dosage: 30 MG
  6. VIZIMPRO [Suspect]
     Active Substance: DACOMITINIB
     Dosage: 15 MG
  7. VIZIMPRO [Suspect]
     Active Substance: DACOMITINIB
     Dosage: 30 MG
  8. MINOCYCLINE [Concomitant]
     Active Substance: MINOCYCLINE HYDROCHLORIDE
     Dosage: 100 MG BID (TWICE A DAY)

REACTIONS (7)
  - Diarrhoea [Recovered/Resolved]
  - Oral pain [Recovered/Resolved]
  - Rhinalgia [Recovered/Resolved]
  - Stomatitis [Recovered/Resolved]
  - Rash macular [Recovered/Resolved]
  - Rash [Unknown]
  - Mouth ulceration [Recovered/Resolved]

NARRATIVE: CASE EVENT DATE: 20230903
